FAERS Safety Report 9343316 (Version 3)
Quarter: 2014Q1

REPORT INFORMATION
  Report Type: Spontaneous
  Country: US (occurrence: US)
  Receive Date: 20130612
  Receipt Date: 20140305
  Transmission Date: 20141002
  Serious: Yes (Hospitalization)
  Sender: FDA-Public Use
  Company Number: US-B.I. PHARMACEUTICALS,INC./RIDGEFIELD-2013-BI-16123BP

PATIENT
  Sex: Female
  Weight: 53.98 kg

DRUGS (14)
  1. PRADAXA [Suspect]
     Indication: CEREBROVASCULAR ACCIDENT PROPHYLAXIS
     Route: 065
     Dates: start: 20110415, end: 20110521
  2. PRADAXA [Suspect]
     Indication: THROMBOSIS PROPHYLAXIS
  3. PRADAXA [Suspect]
     Indication: PULMONARY EMBOLISM
  4. CARVEDILOL [Concomitant]
     Dosage: 12.5 MG
     Route: 048
  5. CALCITRIOL [Concomitant]
     Route: 065
  6. KLOR-CON [Concomitant]
     Dosage: 20 MEQ
     Route: 065
  7. LEVOTHYROXINE [Concomitant]
     Dosage: 25 MCG
     Route: 048
  8. FERROUS SULFATE [Concomitant]
     Dosage: 975 MG
     Route: 048
  9. FUROSEMIDE [Concomitant]
     Dosage: 160 MG
     Route: 048
  10. METOLAZONE [Concomitant]
     Dosage: 5 MG
     Route: 048
  11. MIRTAZAPINE [Concomitant]
     Dosage: 15 MG
     Route: 048
  12. LOVASTATIN [Concomitant]
     Dosage: 10 MG
     Route: 048
  13. VITAMIN B12 [Concomitant]
     Dosage: 250 MCG
     Route: 048
  14. ASPIRIN [Concomitant]
     Dosage: 81 MG
     Route: 048

REACTIONS (3)
  - Gastrointestinal haemorrhage [Unknown]
  - Haemorrhagic anaemia [Unknown]
  - Renal failure acute [Recovered/Resolved]
